FAERS Safety Report 11163517 (Version 1)
Quarter: 2015Q2

REPORT INFORMATION
  Report Type: Spontaneous
  Country: US (occurrence: US)
  Receive Date: 20150604
  Receipt Date: 20150604
  Transmission Date: 20150821
  Serious: Yes (Other)
  Sender: FDA-Public Use
  Company Number: US-SA-2014SA167049

PATIENT
  Age: 71 Year
  Sex: Female
  Weight: 83.9 kg

DRUGS (2)
  1. SOLOSTAR [Concomitant]
     Active Substance: DEVICE
  2. LANTUS SOLOSTAR [Suspect]
     Active Substance: INSULIN GLARGINE
     Indication: TYPE 2 DIABETES MELLITUS
     Dosage: DOSE:13 UNIT(S)
     Route: 065

REACTIONS (4)
  - Malaise [Unknown]
  - Glycosylated haemoglobin increased [Unknown]
  - Nasopharyngitis [Not Recovered/Not Resolved]
  - Cataract [Unknown]
